FAERS Safety Report 4561555-X (Version None)
Quarter: 2005Q1

REPORT INFORMATION
  Report Type: 
  Country: None (occurrence: None)
  Receive Date: 20050118
  Receipt Date: 20040329
  Transmission Date: 20050727
  Serious: Yes (Other)
  Sender: FDA-Public Use
  Company Number: HQWYE268130MAR04

PATIENT
  Sex: Female

DRUGS (2)
  1. PREMPLUS (CONJUGATED ESTROGENS/MEDROXYPROGESTERONE ACETATE, TABLET, UN [Suspect]
     Indication: HORMONE REPLACEMENT THERAPY
     Dosage: ORAL
     Route: 048
     Dates: end: 20040312
  2. ZOCOR [Concomitant]

REACTIONS (1)
  - BREAST CANCER FEMALE [None]
